FAERS Safety Report 13560697 (Version 1)
Quarter: 2017Q2

REPORT INFORMATION
  Report Type: Spontaneous
  Country: US (occurrence: US)
  Receive Date: 20170518
  Receipt Date: 20170518
  Transmission Date: 20170830
  Serious: Yes (Hospitalization)
  Sender: FDA-Public Use
  Company Number: US-ROCHE-717175

PATIENT
  Age: 73 Year
  Sex: Female
  Weight: 60.8 kg

DRUGS (6)
  1. ALLOPURINOL. [Concomitant]
     Active Substance: ALLOPURINOL
     Route: 065
  2. BLINDED INCB18424 (JAK INHIBITOR) [Suspect]
     Active Substance: RUXOLITINIB
     Indication: MYELOFIBROSIS
     Dosage: DOSE BLINDED
     Route: 065
     Dates: start: 20100115, end: 20100618
  3. CALCIUM [Concomitant]
     Active Substance: CALCIUM
     Route: 065
  4. NAPROSYN [Suspect]
     Active Substance: NAPROXEN
     Indication: PRODUCT USED FOR UNKNOWN INDICATION
     Route: 048
     Dates: start: 20100610, end: 20100616
  5. BLINDED INCB18424 (JAK INHIBITOR) [Suspect]
     Active Substance: RUXOLITINIB
     Route: 065
  6. METOPROLOL. [Concomitant]
     Active Substance: METOPROLOL
     Route: 065

REACTIONS (1)
  - Gastrointestinal haemorrhage [Recovered/Resolved]

NARRATIVE: CASE EVENT DATE: 20100617
